FAERS Safety Report 6804345-7 (Version None)
Quarter: 2010Q2

REPORT INFORMATION
  Report Type: 
  Country: None (occurrence: None)
  Receive Date: 20100628
  Receipt Date: 20070308
  Transmission Date: 20101027
  Serious: No
  Sender: FDA-Public Use
  Company Number: US-PFIZER INC-2007018401

PATIENT
  Sex: Female
  Weight: 72.57 kg

DRUGS (4)
  1. CADUET [Suspect]
     Indication: HYPERTENSION
     Dates: start: 20060901, end: 20061227
  2. INSULIN [Concomitant]
  3. ALTACE [Concomitant]
  4. HYDROCHLOROTHIAZIDE [Concomitant]

REACTIONS (1)
  - MYALGIA [None]
